FAERS Safety Report 8454605-1 (Version None)
Quarter: 2012Q2

REPORT INFORMATION
  Report Type: 
  Country: None (occurrence: None)
  Receive Date: 20120621
  Receipt Date: 20120612
  Transmission Date: 20120825
  Serious: No
  Sender: FDA-Public Use
  Company Number: US-BIOGENIDEC-2012BI020858

PATIENT
  Sex: Female

DRUGS (1)
  1. AVONEX [Suspect]
     Indication: MULTIPLE SCLEROSIS
     Route: 030
     Dates: start: 20101219

REACTIONS (9)
  - WEIGHT DECREASED [None]
  - COGNITIVE DISORDER [None]
  - APHAGIA [None]
  - URTICARIA [None]
  - TREMOR [None]
  - ANXIETY [None]
  - MALAISE [None]
  - ALCOHOL ABUSE [None]
  - PANIC ATTACK [None]
